FAERS Safety Report 8551531-4 (Version None)
Quarter: 2012Q3

REPORT INFORMATION
  Report Type: 
  Country: None (occurrence: None)
  Receive Date: 20120724
  Receipt Date: 20120724
  Transmission Date: 20120928
  Serious: No
  Sender: FDA-Public Use
  Company Number: None

PATIENT
  Sex: Female

DRUGS (1)
  1. TARCEVA [Suspect]
     Dosage: 100MG 1 EVERY DAY BY MOUTH
     Route: 048
     Dates: start: 20111220

REACTIONS (1)
  - DIARRHOEA [None]
